FAERS Safety Report 6084097-1 (Version None)
Quarter: 2009Q1

REPORT INFORMATION
  Report Type: 
  Country: None (occurrence: None)
  Receive Date: 20090219
  Receipt Date: 20090212
  Transmission Date: 20090719
  Serious: Yes (Hospitalization)
  Sender: FDA-Public Use
  Company Number: JP-MERCK-0902USA02743

PATIENT
  Age: 67 Year
  Sex: Male

DRUGS (6)
  1. PEPCID RPD [Suspect]
     Route: 048
     Dates: start: 20070824, end: 20090130
  2. MICARDIS [Suspect]
     Route: 048
     Dates: start: 20070824, end: 20090124
  3. PLETAL [Concomitant]
     Route: 048
     Dates: start: 20070904, end: 20090119
  4. ZYLORIC [Concomitant]
     Route: 065
     Dates: end: 20090119
  5. ASPIRIN [Concomitant]
     Route: 048
     Dates: start: 20090119, end: 20090130
  6. BEZATOL [Concomitant]
     Route: 065
     Dates: start: 20090119, end: 20090130

REACTIONS (1)
  - LIVER DISORDER [None]
